FAERS Safety Report 22982138 (Version 2)
Quarter: 2023Q4

REPORT INFORMATION
  Report Type: Spontaneous
  Country: FR (occurrence: None)
  Receive Date: 20230926
  Receipt Date: 20231018
  Transmission Date: 20240110
  Serious: Yes (Death)
  Sender: FDA-Public Use
  Company Number: FR-Orion Corporation ORION PHARMA-TREX2023-0202

PATIENT
  Age: 77 Year
  Sex: Female
  Weight: 63 kg

DRUGS (16)
  1. METHOTREXATE SODIUM [Suspect]
     Active Substance: METHOTREXATE SODIUM
     Indication: Product used for unknown indication
     Dosage: STRENGTH: 2.5 MG, PRESCRIBED DOSE: 12.5 MG WEEKLY, TOOK 36 TABS OF 2.5 MG FOR A PERIOD OF 3 WEEKS
     Dates: start: 20230607, end: 20230621
  2. FUCIDINE [Concomitant]
     Indication: Toxic skin eruption
  3. FOLIC ACID [Concomitant]
     Active Substance: FOLIC ACID
     Dosage: ON MONDAY
  4. BIFONAZOLE [Concomitant]
     Active Substance: BIFONAZOLE
     Indication: Toxic skin eruption
  5. FUNGIZONE [Concomitant]
     Active Substance: AMPHOTERICIN B
  6. LOCOID [Concomitant]
     Active Substance: HYDROCORTISONE BUTYRATE
     Indication: Toxic skin eruption
  7. SIMVASTATIN [Concomitant]
     Active Substance: SIMVASTATIN
  8. METFORMIN HYDROCHLORIDE [Concomitant]
     Active Substance: METFORMIN HYDROCHLORIDE
  9. NOVORAPID [Concomitant]
     Active Substance: INSULIN ASPART
  10. AMLODIPINE [Concomitant]
     Active Substance: AMLODIPINE BESYLATE
     Dates: start: 20230606
  11. CLOPIDOGREL HYDROCHLORIDE [Concomitant]
     Active Substance: CLOPIDOGREL HYDROCHLORIDE
  12. INDAPAMIDE [Concomitant]
     Active Substance: INDAPAMIDE
     Dates: start: 20230606
  13. SERETIDE [Concomitant]
     Active Substance: FLUTICASONE PROPIONATE\SALMETEROL XINAFOATE
  14. TOUJEO [Concomitant]
     Active Substance: INSULIN GLARGINE
  15. VALSARTAN [Concomitant]
     Active Substance: VALSARTAN
  16. TRULICITY [Concomitant]
     Active Substance: DULAGLUTIDE

REACTIONS (10)
  - Febrile neutropenia [Fatal]
  - Death [Fatal]
  - Accidental overdose [Fatal]
  - Product administration error [Fatal]
  - Bone marrow failure [Unknown]
  - Normochromic normocytic anaemia [Unknown]
  - Blister [Unknown]
  - Skin necrosis [Unknown]
  - Paraneoplastic pemphigus [Unknown]
  - Dermatosis [Unknown]

NARRATIVE: CASE EVENT DATE: 20230601
